FAERS Safety Report 7190139-2 (Version None)
Quarter: 2010Q4

REPORT INFORMATION
  Report Type: 
  Country: None (occurrence: None)
  Receive Date: 20101223
  Receipt Date: 20101214
  Transmission Date: 20110411
  Serious: Yes (Hospitalization)
  Sender: FDA-Public Use
  Company Number: US-BRISTOL-MYERS SQUIBB COMPANY-15430754

PATIENT
  Age: 72 Year
  Sex: Male
  Weight: 71 kg

DRUGS (15)
  1. CETUXIMAB [Suspect]
     Indication: NON-SMALL CELL LUNG CANCER
     Dosage: 17SEP2010-12NOV2010,INTERRUPTED12NOV2010,RESTARTED ON 03-DEC-2010,INTERRUPTED 10-DEC-2010
     Route: 042
     Dates: start: 20100917, end: 20101211
  2. CARBOPLATIN [Suspect]
     Indication: NON-SMALL CELL LUNG CANCER
     Dosage: 17SEP2010-12NOV2010 INTERRUPTED12NOV2010,RESTARTED ON 03-DEC-2010,INTERRUPTED 10-DEC-2010
     Route: 042
     Dates: start: 20100917, end: 20101211
  3. GEMCITABINE [Suspect]
     Indication: NON-SMALL CELL LUNG CANCER
     Dosage: 17SEP2010-12NOV2010(56DAYS) DRUG INTERRUPTED ON 12NOV2010
     Route: 042
     Dates: start: 20100917, end: 20101211
  4. SIMVASTATIN [Concomitant]
     Route: 048
  5. LISINOPRIL [Concomitant]
     Route: 048
  6. PLAVIX [Concomitant]
     Route: 048
  7. ATENOLOL [Concomitant]
     Route: 048
  8. AMIODARONE HCL [Concomitant]
     Route: 048
  9. DIGOXIN [Concomitant]
     Route: 048
  10. FUROSEMIDE [Concomitant]
     Route: 048
  11. AMLODIPINE [Concomitant]
     Route: 065
  12. NEXIUM [Concomitant]
     Route: 048
  13. TAMSULOSIN [Concomitant]
     Route: 065
  14. ADVAIR [Concomitant]
     Dosage: ADVAIR 250/50;1DF=1PUFF
     Route: 055
  15. SYMBICORT [Concomitant]
     Dosage: 180MG; 1DF=1PUFF
     Route: 055

REACTIONS (2)
  - CHEST PAIN [None]
  - DYSPNOEA [None]
